FAERS Safety Report 15378490 (Version 1)
Quarter: 2018Q3

REPORT INFORMATION
  Report Type: Spontaneous
  Country: US (occurrence: US)
  Receive Date: 20180913
  Receipt Date: 20180913
  Transmission Date: 20181010
  Serious: No
  Sender: FDA-Public Use
  Company Number: US-OMEROS CORPORATION-2017OME00012

PATIENT
  Age: 46 Year
  Sex: Male
  Weight: 112.47 kg

DRUGS (14)
  1. TRAMADOL. [Concomitant]
     Active Substance: TRAMADOL
  2. NEOSYNEPHRINE [Concomitant]
     Active Substance: PHENYLEPHRINE HYDROCHLORIDE
     Dosage: 1 DROP, EVERY 15 MINUTES FOR 3 DOSES
  3. SULINDAC. [Concomitant]
     Active Substance: SULINDAC
  4. OMIDRIA [Suspect]
     Active Substance: KETOROLAC\PHENYLEPHRINE
     Indication: INTRAOCULAR LENS IMPLANT
  5. METOPROLOL. [Concomitant]
     Active Substance: METOPROLOL
  6. BALANCED SALT SOLUTION [Concomitant]
     Active Substance: CALCIUM CHLORIDE\MAGNESIUM CHLORIDE\POTASSIUM CHLORIDE\SODIUM ACETATE\SODIUM CHLORIDE\SODIUM CITRATE
  7. CYCLOGYL [Concomitant]
     Active Substance: CYCLOPENTOLATE HYDROCHLORIDE
     Dosage: 1 DROP, EVERY 15 MINUTES FOR 3 DOSES
  8. OMIDRIA [Suspect]
     Active Substance: KETOROLAC\PHENYLEPHRINE
     Indication: CATARACT
     Dosage: 4 MLS IN 500 MLS BSS; 350?400 MLS USED, ONCE
     Dates: start: 20170814, end: 20170814
  9. HYLENEX RECOMBINANT [Concomitant]
     Active Substance: HYALURONIDASE (HUMAN RECOMBINANT)
     Dosage: 150 U, ONCE
  10. OMEPRAZOLE. [Concomitant]
     Active Substance: OMEPRAZOLE
  11. CILOXAN [Concomitant]
     Active Substance: CIPROFLOXACIN HYDROCHLORIDE
     Dosage: 1 DROP, EVERY 15 MINUTES FOR 3 DOSES
  12. GABAPENTIN. [Concomitant]
     Active Substance: GABAPENTIN
  13. OCUFEN [Concomitant]
     Active Substance: FLURBIPROFEN SODIUM
     Dosage: 1 DROP, EVERY 15 MINUTES FOR 3 DOSES
  14. LIDOCAINE WITH EPI [Concomitant]
     Dosage: UNK, ONCE

REACTIONS (3)
  - Visual impairment [Recovering/Resolving]
  - Iritis [Recovering/Resolving]
  - Swelling face [Not Recovered/Not Resolved]

NARRATIVE: CASE EVENT DATE: 20170817
